FAERS Safety Report 18275469 (Version 1)
Quarter: 2020Q3

REPORT INFORMATION
  Report Type: Spontaneous
  Country: CN (occurrence: CN)
  Receive Date: 20200917
  Receipt Date: 20200917
  Transmission Date: 20201103
  Serious: Yes (Hospitalization)
  Sender: FDA-Public Use
  Company Number: CN-SA-2020SA248602

PATIENT

DRUGS (21)
  1. CLEXANE [Suspect]
     Active Substance: ENOXAPARIN SODIUM
     Indication: END STAGE RENAL DISEASE
     Dosage: 2000 IU, QD
     Route: 058
     Dates: start: 20200610, end: 20200615
  2. CLEXANE [Suspect]
     Active Substance: ENOXAPARIN SODIUM
     Indication: DIABETES MELLITUS
  3. CEFUROXIME SODIUM. [Suspect]
     Active Substance: CEFUROXIME SODIUM
     Indication: HYPERTENSION
  4. CEFAZOLIN SODIUM. [Suspect]
     Active Substance: CEFAZOLIN SODIUM
     Indication: END STAGE RENAL DISEASE
     Dosage: 0.250 G, QID
     Route: 033
     Dates: start: 20200623, end: 20200624
  5. CEFAZOLIN SODIUM. [Suspect]
     Active Substance: CEFAZOLIN SODIUM
     Indication: DIABETES MELLITUS
  6. CEFAZOLIN SODIUM. [Suspect]
     Active Substance: CEFAZOLIN SODIUM
     Indication: HYPERTENSION
  7. GENTAMYCIN SULFATE [Suspect]
     Active Substance: GENTAMICIN SULFATE
     Indication: END STAGE RENAL DISEASE
     Dosage: 8 MG, QID
     Route: 033
     Dates: start: 20200623, end: 20200624
  8. SODIUM CHLORIDE. [Concomitant]
     Active Substance: SODIUM CHLORIDE
     Dosage: 10.000 ML, Q4D
     Route: 033
     Dates: start: 20200623, end: 20200626
  9. CLEXANE [Suspect]
     Active Substance: ENOXAPARIN SODIUM
     Indication: HYPERTENSION
  10. GENTAMYCIN SULFATE [Suspect]
     Active Substance: GENTAMICIN SULFATE
     Indication: DEEP VEIN THROMBOSIS
  11. AMIKACIN SULFATE. [Suspect]
     Active Substance: AMIKACIN SULFATE
     Indication: DIABETES MELLITUS
  12. CEFUROXIME SODIUM. [Suspect]
     Active Substance: CEFUROXIME SODIUM
     Indication: DIABETES MELLITUS
  13. CEFUROXIME SODIUM. [Suspect]
     Active Substance: CEFUROXIME SODIUM
     Indication: END STAGE RENAL DISEASE
     Dosage: 0.250 G, QID
     Route: 033
     Dates: start: 20200626, end: 20200626
  14. AMIKACIN SULFATE. [Suspect]
     Active Substance: AMIKACIN SULFATE
     Indication: END STAGE RENAL DISEASE
     Dosage: 0.024 G, QID
     Route: 033
     Dates: start: 20200624, end: 20200626
  15. GENTAMYCIN SULFATE [Suspect]
     Active Substance: GENTAMICIN SULFATE
     Indication: DIABETES MELLITUS
  16. CLEXANE [Suspect]
     Active Substance: ENOXAPARIN SODIUM
     Indication: DEEP VEIN THROMBOSIS
     Dosage: 4000 IU, QD
     Route: 058
     Dates: start: 20200615, end: 20200623
  17. CEFAZOLIN SODIUM. [Suspect]
     Active Substance: CEFAZOLIN SODIUM
     Indication: DEEP VEIN THROMBOSIS
  18. AMIKACIN SULFATE. [Suspect]
     Active Substance: AMIKACIN SULFATE
     Indication: HYPERTENSION
  19. GENTAMYCIN SULFATE [Suspect]
     Active Substance: GENTAMICIN SULFATE
     Indication: HYPERTENSION
  20. CEFUROXIME SODIUM. [Suspect]
     Active Substance: CEFUROXIME SODIUM
     Indication: DEEP VEIN THROMBOSIS
  21. AMIKACIN SULFATE. [Suspect]
     Active Substance: AMIKACIN SULFATE
     Indication: DEEP VEIN THROMBOSIS

REACTIONS (1)
  - Henoch-Schonlein purpura [Recovering/Resolving]

NARRATIVE: CASE EVENT DATE: 20200624
